FAERS Safety Report 13656130 (Version 1)
Quarter: 2017Q2

REPORT INFORMATION
  Report Type: Report from Study
  Country: GB (occurrence: GB)
  Receive Date: 20170615
  Receipt Date: 20170615
  Transmission Date: 20170830
  Serious: Yes (Death, Hospitalization, Other)
  Sender: FDA-Public Use
  Company Number: GB-AMGEN-GBRSL2016110920

PATIENT
  Age: 85 Year
  Sex: Male

DRUGS (1)
  1. ARANESP [Suspect]
     Active Substance: DARBEPOETIN ALFA
     Indication: PRODUCT USED FOR UNKNOWN INDICATION
     Dosage: 100 MUG, UNK
     Route: 065

REACTIONS (7)
  - Limb injury [Unknown]
  - Fall [Unknown]
  - Haemoglobin decreased [Unknown]
  - Death [Fatal]
  - Head injury [Unknown]
  - Injury [Unknown]
  - Joint injury [Unknown]

NARRATIVE: CASE EVENT DATE: 20170609
